FAERS Safety Report 11994991 (Version 2)
Quarter: 2016Q1

REPORT INFORMATION
  Report Type: Spontaneous
  Country: US (occurrence: US)
  Receive Date: 20160203
  Receipt Date: 20160216
  Transmission Date: 20160526
  Serious: Yes (Other)
  Sender: FDA-Public Use
  Company Number: US-RECKITT BENCKISER HEALTHCARE INT LIMITED-RB-81260-2016

PATIENT
  Age: 10 Year
  Sex: Male
  Weight: 27.21 kg

DRUGS (1)
  1. CHILDRENS MUCINEX MULTI-SYMPTOM COLD [Suspect]
     Active Substance: DEXTROMETHORPHAN HYDROBROMIDE\GUAIFENESIN\PHENYLEPHRINE HYDROCHLORIDE
     Indication: COUGH
     Dosage: TAKEN AS PER THE DIRECTIONS, EVERY 4 TO 6 HOURS
     Route: 065
     Dates: start: 20151231, end: 20160106

REACTIONS (2)
  - Tachycardia [Recovered/Resolved]
  - Pneumonia [Recovered/Resolved]

NARRATIVE: CASE EVENT DATE: 20160106
